FAERS Safety Report 7536823-X (Version None)
Quarter: 2011Q2

REPORT INFORMATION
  Report Type: 
  Country: None (occurrence: None)
  Receive Date: 20110609
  Receipt Date: 20110607
  Transmission Date: 20111010
  Serious: Yes (Hospitalization)
  Sender: FDA-Public Use
  Company Number: BR-ROCHE-769841

PATIENT
  Age: 70 Year
  Sex: Female
  Weight: 68 kg

DRUGS (4)
  1. LIPITOR [Concomitant]
  2. BONIVA [Suspect]
     Indication: OSTEOPOROSIS
     Dosage: 150 MG/TABLET, STOP DATE: 2011
     Route: 048
     Dates: start: 20100101
  3. CAL-D3 [Concomitant]
  4. ENDOFOLIN [Concomitant]

REACTIONS (1)
  - GASTRIC POLYPS [None]
